FAERS Safety Report 8875649 (Version 1)
Quarter: 2012Q4

REPORT INFORMATION
  Report Type: 
  Country: US (occurrence: US)
  Receive Date: 20121030
  Receipt Date: 20121030
  Transmission Date: 20130627
  Serious: Yes (Hospitalization, Other)
  Sender: FDA-Public Use
  Company Number: CHPA2012US022215

PATIENT
  Age: 86 Year
  Sex: Female

DRUGS (2)
  1. EXCEDRIN EXTRA STRENGTH [Suspect]
     Indication: HEADACHE
     Dosage: 2 caplets, UNK
     Route: 048
     Dates: start: 1982
  2. COUMADIN ^BOOTS^ [Concomitant]

REACTIONS (12)
  - Myocardial infarction [Recovered/Resolved]
  - Cardiac failure congestive [Recovered/Resolved]
  - Hypothyroidism [Recovered/Resolved]
  - Blood cholesterol increased [Unknown]
  - Fatigue [Recovered/Resolved]
  - Activities of daily living impaired [Recovered/Resolved]
  - Toothache [Recovered/Resolved]
  - Mouth haemorrhage [Recovered/Resolved]
  - Dental caries [Recovered/Resolved]
  - Renal disorder [Recovered/Resolved]
  - Kidney infection [Recovered/Resolved]
  - Wrong technique in drug usage process [Unknown]
